FAERS Safety Report 5532405-X (Version None)
Quarter: 2007Q4

REPORT INFORMATION
  Report Type: 
  Country: None (occurrence: None)
  Receive Date: 20071203
  Receipt Date: 20071126
  Transmission Date: 20080405
  Serious: Yes (Other)
  Sender: FDA-Public Use
  Company Number: US-PFIZER INC-2007099246

PATIENT
  Sex: Female
  Weight: 72.6 kg

DRUGS (2)
  1. GEODON [Suspect]
     Indication: BIPOLAR DISORDER
     Dates: start: 20071001, end: 20071101
  2. EFFEXOR XR [Concomitant]

REACTIONS (2)
  - MUSCLE TWITCHING [None]
  - PHARYNGEAL OEDEMA [None]
